FAERS Safety Report 5451851-6 (Version None)
Quarter: 2007Q3

REPORT INFORMATION
  Report Type: 
  Country: None (occurrence: None)
  Receive Date: 20070806
  Receipt Date: 20061120
  Transmission Date: 20080115
  Serious: Yes (Death, Other)
  Sender: FDA-Public Use
  Company Number: 15216

PATIENT
  Age: 69 Year
  Sex: Male
  Weight: 111.1 kg

DRUGS (17)
  1. CYTARABINE [Suspect]
     Indication: ACUTE MYELOID LEUKAEMIA
     Dosage: 3435 MG BID; IV
     Route: 042
     Dates: start: 20060131, end: 20060204
  2. CEP-701 [Suspect]
     Indication: ACUTE MYELOID LEUKAEMIA
     Dosage: 80 MG BID; PO
     Route: 048
     Dates: start: 20060206, end: 20060208
  3. CEP-701 [Suspect]
     Indication: ACUTE MYELOID LEUKAEMIA
     Dosage: 80 MG BID; PO
     Route: 048
     Dates: start: 20060210, end: 20060214
  4. LISINOPRIL [Concomitant]
  5. TESTOSTERONE [Concomitant]
  6. METOPROLOL [Concomitant]
  7. FELODIPINE [Concomitant]
  8. SIMVASTATIN [Concomitant]
  9. ZETIA [Concomitant]
  10. FOLIC ACID [Concomitant]
  11. VITAMIN CAP [Concomitant]
  12. STOOL SOFTENER [Concomitant]
  13. PHENERGAN HCL [Concomitant]
  14. IMODIUM [Concomitant]
  15. TYLENOL (CAPLET) [Concomitant]
  16. ATIVAN [Concomitant]
  17. NORMAL SALINE MOUTHWASH [Concomitant]

REACTIONS (2)
  - BACTERAEMIA [None]
  - CANDIDA SEPSIS [None]
